FAERS Safety Report 21872804 (Version 1)
Quarter: 2023Q1

REPORT INFORMATION
  Report Type: Spontaneous
  Country: CZ (occurrence: CZ)
  Receive Date: 20230117
  Receipt Date: 20230117
  Transmission Date: 20230418
  Serious: Yes (Other)
  Sender: FDA-Public Use
  Company Number: CZ-SUN PHARMACEUTICAL INDUSTRIES LTD-2023RR-374257

PATIENT
  Age: 35 Year
  Sex: Male

DRUGS (8)
  1. OXALIPLATIN [Suspect]
     Active Substance: OXALIPLATIN
     Indication: Metastasis
     Dosage: 7 CYCLES
     Route: 065
     Dates: start: 201903, end: 201907
  2. IRINOTECAN [Suspect]
     Active Substance: IRINOTECAN
     Indication: Metastasis
     Dosage: 4 CYCLES
     Route: 065
     Dates: start: 202008
  3. IRINOTECAN [Suspect]
     Active Substance: IRINOTECAN
     Dosage: UNK
  4. LEUCOVORIN CALCIUM [Suspect]
     Active Substance: LEUCOVORIN CALCIUM
     Indication: Metastasis
     Dosage: 7 CYCLES
     Route: 065
     Dates: start: 201903, end: 201907
  5. LEUCOVORIN CALCIUM [Suspect]
     Active Substance: LEUCOVORIN CALCIUM
     Dosage: 4 CYCLES
     Route: 065
     Dates: start: 202008
  6. FLUOROURACIL [Suspect]
     Active Substance: FLUOROURACIL
     Indication: Metastasis
     Dosage: 7 CYCLES
     Route: 065
     Dates: start: 201903, end: 201907
  7. FLUOROURACIL [Suspect]
     Active Substance: FLUOROURACIL
     Dosage: 4 CYCLES
     Route: 065
     Dates: start: 202008
  8. BEVACIZUMAB [Suspect]
     Active Substance: BEVACIZUMAB
     Indication: Metastasis
     Dosage: 4 CYCLES
     Route: 065
     Dates: start: 202008

REACTIONS (3)
  - Haematotoxicity [Recovering/Resolving]
  - Refusal of treatment by patient [Unknown]
  - Diarrhoea [Unknown]
